FAERS Safety Report 11335428 (Version 2)
Quarter: 2016Q1

REPORT INFORMATION
  Report Type: Report from Study
  Country: US (occurrence: US)
  Receive Date: 20150804
  Receipt Date: 20160111
  Transmission Date: 20160525
  Serious: Yes (Death)
  Sender: FDA-Public Use
  Company Number: US-BEH-2015052702

PATIENT
  Age: 36 Year
  Sex: Male
  Weight: 68.6 kg

DRUGS (3)
  1. ZEMAIRA [Suspect]
     Active Substance: .ALPHA.1-PROTEINASE INHIBITOR HUMAN
     Route: 042
     Dates: start: 20140517, end: 20140517
  2. ZEMAIRA [Suspect]
     Active Substance: .ALPHA.1-PROTEINASE INHIBITOR HUMAN
     Indication: ACUTE GRAFT VERSUS HOST DISEASE
     Route: 042
     Dates: start: 20140514, end: 20140514
  3. ZEMAIRA [Suspect]
     Active Substance: .ALPHA.1-PROTEINASE INHIBITOR HUMAN
     Route: 042
     Dates: start: 20140521, end: 20140521

REACTIONS (2)
  - Graft versus host disease [Unknown]
  - Drug ineffective for unapproved indication [Fatal]

NARRATIVE: CASE EVENT DATE: 20140612
